FAERS Safety Report 20573922 (Version 1)
Quarter: 2022Q1

REPORT INFORMATION
  Report Type: Spontaneous
  Country: RO (occurrence: RO)
  Receive Date: 20220309
  Receipt Date: 20220309
  Transmission Date: 20220423
  Serious: Yes (Death, Hospitalization, Other)
  Sender: FDA-Public Use
  Company Number: RO-009507513-2203ROU002147

PATIENT
  Age: 42 Year
  Sex: Female

DRUGS (1)
  1. KEYTRUDA [Suspect]
     Active Substance: PEMBROLIZUMAB
     Indication: Squamous cell carcinoma of head and neck
     Dosage: 200 MILLIGRAM, Q3W
     Dates: start: 201707

REACTIONS (8)
  - Haemorrhagic stroke [Fatal]
  - Coma scale abnormal [Unknown]
  - Lipase increased [Unknown]
  - Amylase increased [Unknown]
  - Fatigue [Unknown]
  - Rash [Unknown]
  - Pyrexia [Unknown]
  - Diarrhoea [Unknown]
